FAERS Safety Report 5524570-5 (Version None)
Quarter: 2007Q4

REPORT INFORMATION
  Report Type: 
  Country: None (occurrence: None)
  Receive Date: 20071123
  Receipt Date: 20071114
  Transmission Date: 20080405
  Serious: Yes (Other)
  Sender: FDA-Public Use
  Company Number: US-JNJFOC-20071105988

PATIENT
  Sex: Male
  Weight: 95.26 kg

DRUGS (6)
  1. DURAGESIC-100 [Suspect]
     Route: 062
  2. DURAGESIC-100 [Suspect]
     Indication: BACK PAIN
     Route: 062
  3. CYMBALTA [Concomitant]
     Indication: DEPRESSION
     Route: 048
  4. UNKNOWN PAIN MEDICATION [Concomitant]
     Indication: PAIN
     Route: 048
  5. VALIUM [Concomitant]
     Indication: ANXIETY
     Route: 048
  6. UNKNOWN ANTIDEPRESSANT [Concomitant]
     Indication: DEPRESSION
     Route: 048

REACTIONS (10)
  - ABDOMINAL PAIN UPPER [None]
  - ARTERIAL OCCLUSIVE DISEASE [None]
  - DIARRHOEA [None]
  - INCORRECT DRUG ADMINISTRATION DURATION [None]
  - INTERVERTEBRAL DISC PROTRUSION [None]
  - PAIN [None]
  - PHARMACEUTICAL PRODUCT COMPLAINT [None]
  - TOOTH FRACTURE [None]
  - VOMITING [None]
  - WRONG TECHNIQUE IN DRUG USAGE PROCESS [None]
